FAERS Safety Report 17675275 (Version 1)
Quarter: 2020Q2

REPORT INFORMATION
  Report Type: Spontaneous
  Country: US (occurrence: US)
  Receive Date: 20200415
  Receipt Date: 20200415
  Transmission Date: 20200714
  Serious: No
  Sender: FDA-Public Use
  Company Number: None

PATIENT
  Age: 57 Year
  Sex: Male

DRUGS (1)
  1. AMBISOME [Suspect]
     Active Substance: AMPHOTERICIN B
     Dosage: ?          OTHER FREQUENCY:UNKNOWN;?
     Route: 055
     Dates: start: 201901

REACTIONS (1)
  - Off label use [None]

NARRATIVE: CASE EVENT DATE: 20200415
